FAERS Safety Report 7064072-0 (Version None)
Quarter: 2010Q4

REPORT INFORMATION
  Report Type: 
  Country: None (occurrence: None)
  Receive Date: 20101027
  Receipt Date: 20101019
  Transmission Date: 20110411
  Serious: No
  Sender: FDA-Public Use
  Company Number: US-BIOGENIDEC-2010BI031966

PATIENT
  Age: 44 Year
  Sex: Female

DRUGS (1)
  1. AVONEX [Suspect]
     Indication: MULTIPLE SCLEROSIS
     Route: 030
     Dates: start: 20001201

REACTIONS (5)
  - CERVICAL SPINAL STENOSIS [None]
  - MENORRHAGIA [None]
  - NEUTROPHIL COUNT INCREASED [None]
  - NEUTROPHIL TOXIC GRANULATION PRESENT [None]
  - UTERINE INFECTION [None]
